FAERS Safety Report 21332342 (Version 2)
Quarter: 2022Q3

REPORT INFORMATION
  Report Type: Report from Study
  Country: CN (occurrence: CN)
  Receive Date: 20220914
  Receipt Date: 20220921
  Transmission Date: 20221027
  Serious: Yes (Other)
  Sender: FDA-Public Use
  Company Number: CN-Accord-277517

PATIENT
  Age: 66 Year
  Sex: Female

DRUGS (2)
  1. GEMCITABINE [Suspect]
     Active Substance: GEMCITABINE
     Indication: Gallbladder cancer metastatic
     Dosage: 1,000 MG/M2 , EACH FOR 30 MIN OF INTRAVENOUS INJECTION
  2. PACLITAXEL [Suspect]
     Active Substance: PACLITAXEL
     Indication: Gallbladder cancer metastatic
     Dosage: FIRST AND EIGHTH DAY OF A 21- DAY CYCLE AND RECEIVED AN INITIAL DOSAGE OF NAB-PACLITAXEL, 125 MG/M2

REACTIONS (2)
  - Leukopenia [Unknown]
  - Nausea [Unknown]
